FAERS Safety Report 8157976-9 (Version None)
Quarter: 2012Q1

REPORT INFORMATION
  Report Type: 
  Country: None (occurrence: None)
  Receive Date: 20120222
  Receipt Date: 20120207
  Transmission Date: 20120608
  Serious: Yes (Hospitalization, Other)
  Sender: FDA-Public Use
  Company Number: PHHY2011IE110376

PATIENT
  Sex: Female

DRUGS (6)
  1. SYMBICORT [Concomitant]
  2. TOVIAZ [Concomitant]
     Indication: URINARY INCONTINENCE
     Dosage: UNK MG, BID
  3. GILENYA [Suspect]
     Indication: RELAPSING-REMITTING MULTIPLE SCLEROSIS
     Dosage: 0.5 MG, UNK
     Route: 048
     Dates: start: 20111216, end: 20120101
  4. TEGRETOL [Concomitant]
     Indication: EPILEPSY
     Dosage: 600 MG, BID
  5. PROVIGIL [Concomitant]
     Dosage: 100 MG, DAILY
  6. BRICANYL [Concomitant]

REACTIONS (15)
  - HEART RATE INCREASED [None]
  - MUSCULAR WEAKNESS [None]
  - ASTHENIA [None]
  - INFLUENZA LIKE ILLNESS [None]
  - PERIPHERAL COLDNESS [None]
  - OROPHARYNGEAL PAIN [None]
  - HEADACHE [None]
  - WHEEZING [None]
  - PYREXIA [None]
  - HYPOTENSION [None]
  - CHEST PAIN [None]
  - WEIGHT DECREASED [None]
  - LOSS OF CONSCIOUSNESS [None]
  - ASTHMA [None]
  - DYSPNOEA [None]
